FAERS Safety Report 8856806 (Version 2)
Quarter: 2013Q1

REPORT INFORMATION
  Report Type: Spontaneous
  Country: TR (occurrence: None)
  Receive Date: 20121019
  Receipt Date: 20130122
  Transmission Date: 20140127
  Serious: Yes (Life-Threatening, Hospitalization)
  Sender: FDA-Public Use
  Company Number: INT_00135_2012

PATIENT
  Age: 55 Year
  Sex: Male

DRUGS (1)
  1. CEFTRIAXONE (CEFTRIAXONE) [Suspect]
     Indication: URINARY TRACT INFECTION
     Dosage: 1 G, INTRAVENOUS (NOT OTHERWISE SPECIFIC)
     Route: 042

REACTIONS (6)
  - Cyanosis [None]
  - Hypotension [None]
  - Circulatory collapse [None]
  - Respiratory failure [None]
  - Cardiac arrest [None]
  - Anaphylactic reaction [None]
